FAERS Safety Report 7740608-9 (Version None)
Quarter: 2011Q3

REPORT INFORMATION
  Report Type: 
  Country: None (occurrence: None)
  Receive Date: 20110909
  Receipt Date: 20110901
  Transmission Date: 20111222
  Serious: Yes (Hospitalization)
  Sender: FDA-Public Use
  Company Number: US-AMGEN-USASP2011045013

PATIENT
  Age: 79 Year
  Sex: Female

DRUGS (1)
  1. ENBREL [Suspect]
     Indication: RHEUMATOID ARTHRITIS
     Dosage: 50 MG, QWK
     Dates: start: 20090816

REACTIONS (5)
  - FALLOPIAN TUBE ABSCESS [None]
  - ABSCESS INTESTINAL [None]
  - OVARIAN ABSCESS [None]
  - SURGERY [None]
  - COLON CANCER [None]
